FAERS Safety Report 4536965-7 (Version None)
Quarter: 2004Q4

REPORT INFORMATION
  Report Type: 
  Country: None (occurrence: None)
  Receive Date: 20041220
  Receipt Date: 20041203
  Transmission Date: 20050328
  Serious: Yes (Death)
  Sender: FDA-Public Use
  Company Number: T04-SWE-07682-01

PATIENT
  Age: 83 Year
  Sex: Female
  Weight: 70 kg

DRUGS (4)
  1. MEMANTINE HCL [Suspect]
     Indication: DEMENTIA ALZHEIMER'S TYPE
     Dosage: 20 MG QD PO
     Route: 048
     Dates: start: 20030724, end: 20041114
  2. BEHEPAN (CYANOCOBALAMIN) [Concomitant]
  3. FOLACIN [Concomitant]
  4. KATAIPOS D [Concomitant]

REACTIONS (3)
  - FALL [None]
  - GASTRIC DISORDER [None]
  - SUDDEN DEATH [None]
